FAERS Safety Report 4688017-3 (Version None)
Quarter: 2005Q2

REPORT INFORMATION
  Report Type: 
  Country: None (occurrence: None)
  Receive Date: 20050610
  Receipt Date: 20050111
  Transmission Date: 20051028
  Serious: Yes (Hospitalization)
  Sender: FDA-Public Use
  Company Number: 2005UW00493

PATIENT
  Age: 54 Year
  Sex: Female
  Weight: 107 kg

DRUGS (14)
  1. CRESTOR [Suspect]
     Indication: DYSLIPIDAEMIA
     Route: 048
     Dates: start: 20040101
  2. BIAXIN [Interacting]
     Dates: start: 20041201
  3. LIPITOR [Concomitant]
     Indication: DYSLIPIDAEMIA
     Dates: start: 20020416, end: 20040203
  4. NORVASC [Concomitant]
     Route: 048
     Dates: start: 20020416, end: 20040511
  5. ASPIRIN [Concomitant]
     Route: 048
     Dates: start: 20020416
  6. METFORMIN [Concomitant]
     Route: 048
     Dates: end: 20040203
  7. TOFRANIL [Concomitant]
  8. ATIVAN [Concomitant]
  9. ACTOS [Concomitant]
     Dates: end: 20040203
  10. SYNTHROID [Concomitant]
     Route: 048
  11. AVALIDE [Concomitant]
     Route: 048
  12. BONAMINE [Concomitant]
  13. DIAMICRON MR [Concomitant]
     Route: 048
  14. AVANDAMET [Concomitant]

REACTIONS (5)
  - DRUG INTERACTION [None]
  - HAEMODIALYSIS [None]
  - RENAL FAILURE ACUTE [None]
  - RENAL TUBULAR NECROSIS [None]
  - RHABDOMYOLYSIS [None]
